FAERS Safety Report 7983486-5 (Version None)
Quarter: 2011Q4

REPORT INFORMATION
  Report Type: 
  Country: None (occurrence: None)
  Receive Date: 20111215
  Receipt Date: 20111208
  Transmission Date: 20120403
  Serious: Yes (Hospitalization)
  Sender: FDA-Public Use
  Company Number: US-UCBSA-045542

PATIENT
  Age: 57 Year
  Sex: Male
  Weight: 106.59 kg

DRUGS (20)
  1. SINEMET [Concomitant]
     Indication: PARKINSON'S DISEASE
     Dosage: 25/100 ONE TAB AS NECESSARY
     Dates: start: 20040101
  2. JANUVIA [Concomitant]
     Indication: DIABETES MELLITUS
     Dates: start: 20080101
  3. PRILOSEC [Concomitant]
     Indication: GASTROOESOPHAGEAL REFLUX DISEASE
     Dates: start: 19980101
  4. IBUPROFEN [Concomitant]
     Indication: MUSCLE SPASMS
     Dates: start: 20050401
  5. SEROQUEL [Concomitant]
     Indication: ABNORMAL DREAMS
     Dates: start: 20050201
  6. ASPIRIN [Concomitant]
     Indication: CARDIOVASCULAR EVENT PROPHYLAXIS
     Dates: start: 20090127
  7. BACLOFEN [Concomitant]
     Dates: start: 20010101, end: 20090319
  8. VITAMIN D [Concomitant]
     Indication: PROPHYLAXIS
     Dates: start: 20110101
  9. RAMIPRIL [Concomitant]
     Indication: LEFT VENTRICULAR DYSFUNCTION
     Dates: start: 20090101
  10. LEXAPRO [Concomitant]
     Indication: DEPRESSION
     Dosage: 10-20 MG ONCE DAILY
     Dates: start: 20091210
  11. SINEMET ER [Concomitant]
     Indication: PARKINSON'S DISEASE
     Dosage: 50/200 1 TAB 5 TIMES DAILY
     Dates: start: 20060801
  12. TRICOR [Concomitant]
     Indication: HYPERLIPIDAEMIA
     Dates: start: 20050401
  13. RAMIPRIL [Concomitant]
     Dates: start: 20090127, end: 20090101
  14. METFORMIN HCL [Concomitant]
     Indication: DIABETES MELLITUS
     Dates: start: 20080101
  15. GLIPIZIDE [Concomitant]
     Dates: start: 20050401, end: 20101201
  16. M.V.I. [Concomitant]
     Indication: PROPHYLAXIS
     Dosage: 1 TAB QD
     Dates: start: 20110101
  17. ROTIGOTINE [Suspect]
     Indication: PARKINSON'S DISEASE
     Route: 062
     Dates: start: 20090112
  18. GLIPIZIDE [Concomitant]
     Indication: DIABETES MELLITUS
     Dates: start: 20101201
  19. ACTOS [Concomitant]
     Indication: DIABETES MELLITUS
     Dosage: ONCE DAILY
     Dates: start: 20110301
  20. BACLOFEN [Concomitant]
     Indication: MUSCLE SPASMS
     Dates: start: 20100101

REACTIONS (2)
  - SPINAL FUSION SURGERY [None]
  - INFECTION [None]
